FAERS Safety Report 24679439 (Version 2)
Quarter: 2025Q3

REPORT INFORMATION
  Report Type: Spontaneous
  Country: RU (occurrence: RU)
  Receive Date: 20241129
  Receipt Date: 20250803
  Transmission Date: 20251020
  Serious: Yes (Other)
  Sender: ALEXION PHARMACEUTICALS
  Company Number: RU-ASTRAZENECA-202411RUS017157RU

PATIENT

DRUGS (1)
  1. DAPAGLIFLOZIN [Suspect]
     Active Substance: DAPAGLIFLOZIN
     Indication: Chronic kidney disease

REACTIONS (4)
  - Cerebrovascular accident [Unknown]
  - Loss of consciousness [Unknown]
  - Fall [Unknown]
  - Renal disorder [Unknown]
